FAERS Safety Report 5195982-7 (Version None)
Quarter: 2006Q4

REPORT INFORMATION
  Report Type: 
  Country: None (occurrence: None)
  Receive Date: 20061227
  Receipt Date: 20061227
  Transmission Date: 20070319
  Serious: Yes (Other)
  Sender: FDA-Public Use
  Company Number: None

PATIENT
  Sex: Female
  Weight: 90.7194 kg

DRUGS (2)
  1. VANCOMYCIN [Suspect]
     Indication: ANTIBIOTIC PROPHYLAXIS
     Dosage: 1 GM ONE TIME DOSE IV
     Route: 042
     Dates: start: 20061115, end: 20061215
  2. VANCOMYCIN [Suspect]
     Indication: JOINT ARTHROPLASTY
     Dosage: 1 GM ONE TIME DOSE IV
     Route: 042
     Dates: start: 20061115, end: 20061215

REACTIONS (3)
  - FLUSHING [None]
  - PRURITUS GENERALISED [None]
  - URTICARIA [None]
